FAERS Safety Report 4509561-5 (Version None)
Quarter: 2004Q4

REPORT INFORMATION
  Report Type: 
  Country: None (occurrence: None)
  Receive Date: 20041119
  Receipt Date: 20041109
  Transmission Date: 20050328
  Serious: No
  Sender: FDA-Public Use
  Company Number: RS004822-USA

PATIENT
  Age: 68 Year
  Sex: Male

DRUGS (1)
  1. ACIPHEX [Suspect]
     Indication: GASTROINTESTINAL HAEMORRHAGE
     Dosage: 20 MG, ORAL
     Route: 048
     Dates: start: 20010101, end: 20011026

REACTIONS (1)
  - RENAL FAILURE [None]
